FAERS Safety Report 7384710-2 (Version None)
Quarter: 2011Q1

REPORT INFORMATION
  Report Type: 
  Country: None (occurrence: None)
  Receive Date: 20110330
  Receipt Date: 20110318
  Transmission Date: 20110831
  Serious: Yes (Other)
  Sender: FDA-Public Use
  Company Number: PHHY2011JP19652

PATIENT
  Age: 16 Year
  Sex: Female

DRUGS (9)
  1. CYCLOSPORINE [Suspect]
     Indication: STEM CELL TRANSPLANT
  2. MELPHALAN [Concomitant]
     Dosage: 60 MG/M2 X 2
  3. TACROLIMUS [Concomitant]
     Indication: PROPHYLAXIS AGAINST GRAFT VERSUS HOST DISEASE
  4. IRRADIATION [Concomitant]
  5. MELPHALAN [Concomitant]
     Dosage: 60 MG/M2 X 3
  6. CYCLOSPORINE [Suspect]
     Indication: PROPHYLAXIS AGAINST GRAFT VERSUS HOST DISEASE
  7. FLUDARABINE [Concomitant]
     Dosage: 30 MG/M2 X 6
  8. METHOTREXATE [Concomitant]
     Indication: PROPHYLAXIS AGAINST GRAFT VERSUS HOST DISEASE
  9. BUSULPHAN [Concomitant]
     Dosage: 0.8 MG/KG X 12

REACTIONS (3)
  - ORGANISING PNEUMONIA [None]
  - VENOOCCLUSIVE LIVER DISEASE [None]
  - GRAFT VERSUS HOST DISEASE [None]
